FAERS Safety Report 6781139-2 (Version None)
Quarter: 2010Q2

REPORT INFORMATION
  Report Type: 
  Country: None (occurrence: None)
  Receive Date: 20100621
  Receipt Date: 20100520
  Transmission Date: 20101027
  Serious: No
  Sender: FDA-Public Use
  Company Number: US-BAYER-201015905BCC

PATIENT
  Age: 37 Year
  Sex: Female
  Weight: 61 kg

DRUGS (2)
  1. ALEVE [Suspect]
     Indication: HEADACHE
     Dosage: TOTAL DAILY DOSE: 880 MG  UNIT DOSE: 220 MG
     Route: 048
     Dates: start: 20100520
  2. ORAL CONTRACEPTIVES [Concomitant]
     Route: 065

REACTIONS (3)
  - ABDOMINAL DISCOMFORT [None]
  - FEELING ABNORMAL [None]
  - NAUSEA [None]
